FAERS Safety Report 5309224-2 (Version None)
Quarter: 2007Q2

REPORT INFORMATION
  Report Type: 
  Country: None (occurrence: None)
  Receive Date: 20070423
  Receipt Date: 20070418
  Transmission Date: 20071010
  Serious: Yes (Death, Disabling)
  Sender: FDA-Public Use
  Company Number: 2007SP007428

PATIENT
  Age: 71 Year
  Sex: Male
  Weight: 46 kg

DRUGS (9)
  1. TEMODAL [Suspect]
     Indication: GLIOBLASTOMA MULTIFORME
     Dosage: SEE IMAGE
     Route: 048
     Dates: start: 20061023, end: 20061027
  2. TEMODAL [Suspect]
     Indication: GLIOBLASTOMA MULTIFORME
     Dosage: SEE IMAGE
     Route: 048
     Dates: start: 20061120, end: 20061124
  3. GLYCEOL (CON.) [Concomitant]
  4. PHENOBARBITAL (CON.) [Concomitant]
  5. FLIVAS (CON.) [Concomitant]
  6. DIGITOXIN (CON.) [Concomitant]
  7. COVERSYL (CON.) [Concomitant]
  8. DIOVAN (CON.) [Concomitant]
  9. AMLODIN (CON.) [Concomitant]

REACTIONS (4)
  - DISSEMINATED INTRAVASCULAR COAGULATION [None]
  - GLIOBLASTOMA MULTIFORME [None]
  - MALIGNANT NEOPLASM PROGRESSION [None]
  - PNEUMONIA [None]
